FAERS Safety Report 6678871-8 (Version None)
Quarter: 2010Q2

REPORT INFORMATION
  Report Type: 
  Country: None (occurrence: None)
  Receive Date: 20100408
  Receipt Date: 20100325
  Transmission Date: 20101027
  Serious: Yes (Death)
  Sender: FDA-Public Use
  Company Number: 2010JP000721

PATIENT
  Age: 68 Year
  Sex: Male
  Weight: 57.3 kg

DRUGS (11)
  1. TACROLIMUS [Suspect]
     Indication: RENAL TRANSPLANT
     Dosage: 5 MG, UID/QD, ORAL; 7 MG, UID/QD, ORAL; 3 MG, UID/QD, ORAL; 2 MG, UID/QD, ORAL
     Route: 048
     Dates: start: 20091130, end: 20091202
  2. TACROLIMUS [Suspect]
     Indication: RENAL TRANSPLANT
     Dosage: 5 MG, UID/QD, ORAL; 7 MG, UID/QD, ORAL; 3 MG, UID/QD, ORAL; 2 MG, UID/QD, ORAL
     Route: 048
     Dates: start: 20091208, end: 20091211
  3. TACROLIMUS [Suspect]
     Indication: RENAL TRANSPLANT
     Dosage: 5 MG, UID/QD, ORAL; 7 MG, UID/QD, ORAL; 3 MG, UID/QD, ORAL; 2 MG, UID/QD, ORAL
     Route: 048
     Dates: start: 20091212, end: 20091214
  4. TACROLIMUS [Suspect]
     Indication: RENAL TRANSPLANT
     Dosage: 5 MG, UID/QD, ORAL; 7 MG, UID/QD, ORAL; 3 MG, UID/QD, ORAL; 2 MG, UID/QD, ORAL
     Route: 048
     Dates: start: 20091215, end: 20091217
  5. TACROLIMUS [Suspect]
     Indication: RENAL TRANSPLANT
     Dosage: 5 MG, UID/QD, ORAL; 7 MG, UID/QD, ORAL; 3 MG, UID/QD, ORAL; 2 MG, UID/QD, ORAL
     Route: 048
     Dates: start: 20091228, end: 20100120
  6. PROGRAF [Suspect]
     Indication: RENAL TRANSPLANT
     Dosage: 2.5 MG,; 1 MG,
     Dates: start: 20091203, end: 20091203
  7. PROGRAF [Suspect]
     Indication: RENAL TRANSPLANT
     Dosage: 2.5 MG,; 1 MG,
     Dates: start: 20091204, end: 20091207
  8. METHYLPREDNISOLONE [Concomitant]
  9. METHYLPREDNISOLONE [Concomitant]
  10. MYCOPHENOLATE MOFETIL [Concomitant]
  11. BASILIXIMAB (BASILIXIMAB) INJECTION [Concomitant]

REACTIONS (5)
  - BACTERIAL TEST POSITIVE [None]
  - DISSEMINATED INTRAVASCULAR COAGULATION [None]
  - ENDOCARDITIS STAPHYLOCOCCAL [None]
  - INFECTION [None]
  - STAPHYLOCOCCAL INFECTION [None]
